FAERS Safety Report 7299778-1 (Version None)
Quarter: 2011Q1

REPORT INFORMATION
  Report Type: 
  Country: None (occurrence: None)
  Receive Date: 20110209
  Receipt Date: 20110126
  Transmission Date: 20110831
  Serious: Yes (Other)
  Sender: FDA-Public Use
  Company Number: 011198

PATIENT
  Age: 1 Year
  Sex: Male

DRUGS (5)
  1. ETOPOSIDE [Concomitant]
  2. HEPARIN [Concomitant]
  3. BUSULFAN [Suspect]
     Indication: STEM CELL TRANSPLANT
     Dosage: 4 MG/KG
  4. CYCLOPHOSPHAMIDE [Concomitant]
  5. ACYCLOVIR [Concomitant]

REACTIONS (4)
  - MUCOSAL INFLAMMATION [None]
  - PNEUMOCOCCAL SEPSIS [None]
  - NEUTROPENIA [None]
  - SEPTIC SHOCK [None]
